FAERS Safety Report 24613025 (Version 1)
Quarter: 2024Q4

REPORT INFORMATION
  Report Type: Spontaneous
  Country: GB (occurrence: GB)
  Receive Date: 20241113
  Receipt Date: 20241113
  Transmission Date: 20250115
  Serious: Yes (Hospitalization)
  Sender: MYLAN
  Company Number: GB-MYLANLABS-2024M1101063

PATIENT
  Sex: Male

DRUGS (1)
  1. CLOZARIL [Suspect]
     Active Substance: CLOZAPINE
     Indication: Schizophrenia
     Dosage: UNK (LAST DOSE TAKEN ON 04-NOV-2024 AT 9 AM)
     Route: 048
     Dates: start: 20241016, end: 20241104

REACTIONS (1)
  - Chest pain [Unknown]
